FAERS Safety Report 8104621-4 (Version None)
Quarter: 2012Q1

REPORT INFORMATION
  Report Type: 
  Country: None (occurrence: None)
  Receive Date: 20120130
  Receipt Date: 20120123
  Transmission Date: 20120608
  Serious: Yes (Hospitalization)
  Sender: FDA-Public Use
  Company Number: PHEH2012US002132

PATIENT
  Sex: Female

DRUGS (3)
  1. KINERET [Concomitant]
  2. ILARIS [Suspect]
     Indication: MUCKLE-WELLS SYNDROME
     Dosage: 150 MG, Q8W
     Route: 058
     Dates: start: 20100901
  3. STEROIDS NOS [Concomitant]

REACTIONS (4)
  - HAEMORRHAGE [None]
  - DRUG ADMINISTRATION ERROR [None]
  - MUCKLE-WELLS SYNDROME [None]
  - CONDITION AGGRAVATED [None]
